FAERS Safety Report 15569856 (Version 2)
Quarter: 2018Q4

REPORT INFORMATION
  Report Type: Spontaneous
  Country: US (occurrence: US)
  Receive Date: 20181031
  Receipt Date: 20181106
  Transmission Date: 20190205
  Serious: No
  Sender: FDA-Public Use
  Company Number: US-PFIZER INC-2018439494

PATIENT
  Age: 11 Year
  Sex: Male
  Weight: 54 kg

DRUGS (2)
  1. ERYTHROMYCIN. [Concomitant]
     Active Substance: ERYTHROMYCIN
     Indication: GASTROINTESTINAL MOTILITY DISORDER
     Dosage: 25 MG, 4X/DAY (EVERY 6 HOURS)
     Dates: start: 201809, end: 201810
  2. PROTONIX [Suspect]
     Active Substance: PANTOPRAZOLE SODIUM
     Indication: PANCREATICODUODENECTOMY
     Dosage: 40 MG TABLET, DAILY
     Route: 048
     Dates: start: 201809

REACTIONS (2)
  - Faeces pale [Not Recovered/Not Resolved]
  - Product use in unapproved indication [Unknown]

NARRATIVE: CASE EVENT DATE: 201809
